FAERS Safety Report 18066184 (Version 1)
Quarter: 2020Q3

REPORT INFORMATION
  Report Type: Spontaneous
  Country: PR (occurrence: PR)
  Receive Date: 20200724
  Receipt Date: 20200724
  Transmission Date: 20201103
  Serious: No
  Sender: FDA-Public Use
  Company Number: None

PATIENT
  Age: 49 Year
  Sex: Female

DRUGS (2)
  1. METHYLPREDNISOLONE. [Suspect]
     Active Substance: METHYLPREDNISOLONE
     Dates: start: 20200715, end: 20200718
  2. DICLOFENAC GEL 1% [Concomitant]
     Active Substance: DICLOFENAC
     Dates: start: 20200715

REACTIONS (4)
  - Eye inflammation [None]
  - Swelling of eyelid [None]
  - Eye allergy [None]
  - Eye irritation [None]

NARRATIVE: CASE EVENT DATE: 20200715
